FAERS Safety Report 6919731-4 (Version None)
Quarter: 2010Q3

REPORT INFORMATION
  Report Type: 
  Country: None (occurrence: None)
  Receive Date: 20100811
  Receipt Date: 20100727
  Transmission Date: 20110219
  Serious: Yes (Hospitalization, Other)
  Sender: FDA-Public Use
  Company Number: US-ELI_LILLY_AND_COMPANY-USA050392543

PATIENT
  Sex: Female

DRUGS (11)
  1. EVISTA [Suspect]
     Indication: OSTEOPOROSIS
     Dosage: UNK, UNKNOWN
     Dates: start: 20040601
  2. FORTEO [Concomitant]
     Indication: OSTEOPOROSIS
     Dosage: 20 UG, DAILY (1/D)
     Dates: start: 20090301
  3. FUROSEMIDE [Concomitant]
     Dosage: 40 MG, DAILY (1/D)
  4. PROTONIX [Concomitant]
     Dosage: 40 MG, DAILY (1/D)
  5. POTASSIUM [Concomitant]
     Dosage: 10 MEQ, DAILY (1/D)
  6. METOPROLOL [Concomitant]
     Dosage: 25 MG, DAILY (1/D)
  7. SIMVASTATIN [Concomitant]
     Dosage: 40 MG, DAILY (1/D)
  8. ASPIRIN [Concomitant]
     Dosage: 81 MG, 2/D
  9. LOVAZA [Concomitant]
     Dosage: UNK, DAILY (1/D)
  10. CALCIUM [Concomitant]
     Dosage: UNK, DAILY (1/D)
  11. MULTI-VIT [Concomitant]
     Dosage: UNK, DAILY (1/D)

REACTIONS (7)
  - BONE DISORDER [None]
  - FALL [None]
  - HIP FRACTURE [None]
  - HOSPITALISATION [None]
  - LIMB ASYMMETRY [None]
  - RADIUS FRACTURE [None]
  - THORACIC OUTLET SYNDROME [None]
